FAERS Safety Report 21113744 (Version 4)
Quarter: 2023Q2

REPORT INFORMATION
  Report Type: Spontaneous
  Country: US (occurrence: US)
  Receive Date: 20220721
  Receipt Date: 20230406
  Transmission Date: 20230722
  Serious: No
  Sender: FDA-Public Use
  Company Number: US-KARYOPHARM-2022KPT000731

PATIENT

DRUGS (9)
  1. XPOVIO [Suspect]
     Active Substance: SELINEXOR
     Indication: Plasma cell myeloma
     Dosage: 80 MG, WEEKLY (DAY 1, 8, 15 Q28D)
     Route: 048
     Dates: start: 20220625
  2. XPOVIO [Suspect]
     Active Substance: SELINEXOR
     Dosage: 40 MG, WEEKLY
     Route: 048
     Dates: end: 202301
  3. XPOVIO [Suspect]
     Active Substance: SELINEXOR
     Dosage: 40 MG, WEEKLY FOR 3 WEEKS
     Route: 048
     Dates: start: 20230203
  4. ACYCLOVIR [Concomitant]
     Active Substance: ACYCLOVIR
  5. ALLOPURINOL [Concomitant]
     Active Substance: ALLOPURINOL
  6. LISINOPRIL [Concomitant]
     Active Substance: LISINOPRIL
  7. KYPROLIS [Concomitant]
     Active Substance: CARFILZOMIB
  8. VARUBI [ROLAPITANT] [Concomitant]
  9. XYOSTED [Concomitant]
     Active Substance: TESTOSTERONE ENANTHATE

REACTIONS (6)
  - COVID-19 [Not Recovered/Not Resolved]
  - Ageusia [Unknown]
  - Neuropathy peripheral [Not Recovered/Not Resolved]
  - Fatigue [Not Recovered/Not Resolved]
  - Abdominal pain upper [Unknown]
  - Constipation [Not Recovered/Not Resolved]

NARRATIVE: CASE EVENT DATE: 20220101
